FAERS Safety Report 8207169-1 (Version None)
Quarter: 2012Q1

REPORT INFORMATION
  Report Type: 
  Country: None (occurrence: None)
  Receive Date: 20120312
  Receipt Date: 20120229
  Transmission Date: 20120608
  Serious: Yes (Other)
  Sender: FDA-Public Use
  Company Number: 2012-00360

PATIENT
  Age: 35 Year
  Sex: Female

DRUGS (2)
  1. AMOXICILLIN [Concomitant]
  2. CEPHALEXIN [Suspect]
     Indication: PARONYCHIA
     Dosage: ORAL
     Route: 048

REACTIONS (2)
  - PORPHYRIA [None]
  - CONDITION AGGRAVATED [None]
